FAERS Safety Report 24294276 (Version 1)
Quarter: 2024Q3

REPORT INFORMATION
  Report Type: Spontaneous
  Country: US (occurrence: US)
  Receive Date: 20240906
  Receipt Date: 20240906
  Transmission Date: 20241017
  Serious: No
  Sender: DOMPE FARMACEUTICI
  Company Number: US-FARMAPROD-202406-2223

PATIENT
  Sex: Female
  Weight: 48.08 kg

DRUGS (20)
  1. OXERVATE [Suspect]
     Active Substance: CENEGERMIN-BKBJ
     Indication: Neurotrophic keratopathy
     Route: 047
     Dates: start: 20240523
  2. OXERVATE [Suspect]
     Active Substance: CENEGERMIN-BKBJ
  3. REFRESH TEARS [Concomitant]
     Active Substance: CARBOXYMETHYLCELLULOSE SODIUM
  4. VITAMINS [Concomitant]
     Active Substance: VITAMINS
  5. OS-CAL 500-VIT D3 [Concomitant]
     Dosage: 500MG-5MCG
  6. GAMUNEX-C [Concomitant]
     Active Substance: HUMAN IMMUNOGLOBULIN G
     Dosage: 20 G/200ML VIAL
  7. SIMPONI [Concomitant]
     Active Substance: GOLIMUMAB
     Dosage: 50MG/0.5ML PEN INJECTOR
  8. SYNTHROID [Concomitant]
     Active Substance: LEVOTHYROXINE SODIUM
  9. SYNTHROID [Concomitant]
     Active Substance: LEVOTHYROXINE SODIUM
  10. PREDNISONE [Concomitant]
     Active Substance: PREDNISONE
  11. LEFLUNOMIDE [Concomitant]
     Active Substance: LEFLUNOMIDE
  12. PROLIA [Concomitant]
     Active Substance: DENOSUMAB
     Dosage: SYRINGE
  13. VITAMIN D3 [Concomitant]
     Active Substance: CHOLECALCIFEROL
  14. ESTRADIOL [Concomitant]
     Active Substance: ESTRADIOL
     Dosage: CREAM WITH APPLICATOR
  15. GABAPENTIN [Concomitant]
     Active Substance: GABAPENTIN
  16. TRAMADOL HCL [Concomitant]
     Active Substance: TRAMADOL HYDROCHLORIDE
  17. LEVOTHYROXINE SODIUM [Concomitant]
     Active Substance: LEVOTHYROXINE SODIUM
  18. ATORVASTATIN CALCIUM [Concomitant]
     Active Substance: ATORVASTATIN CALCIUM
  19. METHOTREXATE [Concomitant]
     Active Substance: METHOTREXATE
     Dosage: VIAL
  20. INFLECTRA [Concomitant]
     Active Substance: INFLIXIMAB-DYYB
     Dosage: VIAL

REACTIONS (3)
  - Eye pain [Unknown]
  - Accidental overdose [Unknown]
  - Drug ineffective [Not Recovered/Not Resolved]
